FAERS Safety Report 8891125 (Version 3)
Quarter: 2014Q1

REPORT INFORMATION
  Report Type: Report from Study
  Country: BR (occurrence: BR)
  Receive Date: 20121107
  Receipt Date: 20140210
  Transmission Date: 20141002
  Serious: Yes (Other)
  Sender: FDA-Public Use
  Company Number: BR-ROCHE-1103201

PATIENT
  Age: 55 Year
  Sex: Male
  Weight: 83 kg

DRUGS (6)
  1. INTERFERON ALFA-2A [Suspect]
     Indication: HEPATITIS C
     Route: 065
     Dates: start: 201102, end: 201201
  2. RIBAVIRIN [Suspect]
     Indication: HEPATITIS C
     Route: 048
  3. PEG-INTERFERON ALFA 2A [Suspect]
     Indication: HEPATITIS C
     Route: 065
  4. INCIVO [Suspect]
     Indication: HEPATITIS C
     Route: 065
  5. MEPRAZOL [Concomitant]
     Indication: ULCER
     Route: 065
  6. COLCHICINE [Concomitant]

REACTIONS (14)
  - Hepatic cirrhosis [Recovered/Resolved]
  - Hepatitis C [Unknown]
  - Malaise [Recovered/Resolved]
  - Fatigue [Recovered/Resolved]
  - Nausea [Recovered/Resolved]
  - Asthenia [Recovered/Resolved]
  - Somnolence [Recovered/Resolved]
  - Alopecia [Recovered/Resolved]
  - Malaise [Not Recovered/Not Resolved]
  - Feeling of despair [Not Recovered/Not Resolved]
  - Platelet count decreased [Not Recovered/Not Resolved]
  - Skin disorder [Not Recovered/Not Resolved]
  - Pruritus [Not Recovered/Not Resolved]
  - Varicose vein [Not Recovered/Not Resolved]
